FAERS Safety Report 21026143 (Version 1)
Quarter: 2022Q2

REPORT INFORMATION
  Report Type: Spontaneous
  Country: DE (occurrence: DE)
  Receive Date: 20220630
  Receipt Date: 20220630
  Transmission Date: 20220721
  Serious: Yes (Other)
  Sender: FDA-Public Use
  Company Number: DE-PFIZER INC-202200887415

PATIENT
  Sex: Female

DRUGS (3)
  1. FRAGMIN [Suspect]
     Active Substance: DALTEPARIN SODIUM
     Dosage: 7500 IU
  2. RIVAROXABAN [Suspect]
     Active Substance: RIVAROXABAN
     Dosage: UNK
  3. DABIGATRAN [Suspect]
     Active Substance: DABIGATRAN
     Dosage: UNK

REACTIONS (2)
  - Embolic stroke [Unknown]
  - Cerebellar stroke [Unknown]

NARRATIVE: CASE EVENT DATE: 20160101
